FAERS Safety Report 12709574 (Version 3)
Quarter: 2016Q3

REPORT INFORMATION
  Report Type: Spontaneous
  Country: TR (occurrence: TR)
  Receive Date: 20160902
  Receipt Date: 20160908
  Transmission Date: 20161109
  Serious: Yes (Other)
  Sender: FDA-Public Use
  Company Number: TR-JNJFOC-20160827700

PATIENT
  Age: 27 Year
  Sex: Male

DRUGS (2)
  1. OXYBUTYNIN [Suspect]
     Active Substance: OXYBUTYNIN
     Indication: PRODUCT USED FOR UNKNOWN INDICATION
     Dosage: 20-30 TABLETS A DAY (100-150 MG)
     Route: 065
  2. OXYBUTYNIN [Suspect]
     Active Substance: OXYBUTYNIN
     Indication: PRODUCT USED FOR UNKNOWN INDICATION
     Dosage: INITIALLY TOOK 1-2 TABLETS A DAY
     Route: 065

REACTIONS (5)
  - Anuria [Unknown]
  - Dry mouth [Unknown]
  - Constipation [Unknown]
  - Off label use [Unknown]
  - Drug abuse [Unknown]
